FAERS Safety Report 12327278 (Version 2)
Quarter: 2016Q2

REPORT INFORMATION
  Report Type: Spontaneous
  Country: CA (occurrence: CA)
  Receive Date: 20160503
  Receipt Date: 20160512
  Transmission Date: 20160815
  Serious: Yes (Other)
  Sender: FDA-Public Use
  Company Number: CA-WATSON-2016-09173

PATIENT
  Age: 78 Year
  Sex: Male

DRUGS (1)
  1. METOCLOPRAMIDE (UNKNOWN) [Suspect]
     Active Substance: METOCLOPRAMIDE
     Indication: HIATUS HERNIA
     Dosage: 10 MG, BID
     Route: 065

REACTIONS (1)
  - Parkinsonism [Recovering/Resolving]

NARRATIVE: CASE EVENT DATE: 1988
